FAERS Safety Report 6450708-1 (Version None)
Quarter: 2009Q4

REPORT INFORMATION
  Report Type: 
  Country: None (occurrence: None)
  Receive Date: 20091112
  Receipt Date: 20080925
  Transmission Date: 20100525
  Serious: Yes (Other)
  Sender: FDA-Public Use
  Company Number: 2008BH010135

PATIENT

DRUGS (2)
  1. PHENERGAN HCL [Suspect]
     Indication: NAUSEA
     Dosage: 12.5 MG; IV
     Route: 042
     Dates: start: 20080901, end: 20080901
  2. DILAUDID [Concomitant]

REACTIONS (1)
  - BLOOD PRESSURE DECREASED [None]
